FAERS Safety Report 7354318-3 (Version None)
Quarter: 2011Q1

REPORT INFORMATION
  Report Type: 
  Country: None (occurrence: None)
  Receive Date: 20110316
  Receipt Date: 20110307
  Transmission Date: 20110831
  Serious: No
  Sender: FDA-Public Use
  Company Number: US-BIOGENIDEC-2011BI009113

PATIENT
  Age: 27 Year
  Sex: Female

DRUGS (2)
  1. AVONEX [Suspect]
     Indication: MULTIPLE SCLEROSIS
     Route: 030
     Dates: start: 20090501, end: 20100607
  2. AVONEX [Suspect]
     Route: 030
     Dates: start: 20110304

REACTIONS (2)
  - VERTIGO [None]
  - CHILLS [None]
